FAERS Safety Report 4590558-4 (Version None)
Quarter: 2005Q1

REPORT INFORMATION
  Report Type: 
  Country: None (occurrence: None)
  Receive Date: 20050224
  Receipt Date: 20041201
  Transmission Date: 20050727
  Serious: Yes (Other)
  Sender: FDA-Public Use
  Company Number: US-GLAXOSMITHKLINE-A0535727A

PATIENT
  Age: 39 Year
  Sex: Female
  Weight: 71.8 kg

DRUGS (2)
  1. LAMICTAL [Suspect]
     Indication: BIPOLAR DISORDER
     Route: 048
     Dates: start: 20041101, end: 20041101
  2. RISPERDAL [Concomitant]

REACTIONS (7)
  - AFFECT LABILITY [None]
  - AFFECTIVE DISORDER [None]
  - AGITATION [None]
  - ANXIETY [None]
  - PSYCHOTIC DISORDER [None]
  - SUICIDAL IDEATION [None]
  - TREATMENT NONCOMPLIANCE [None]
